FAERS Safety Report 4908977-2 (Version None)
Quarter: 2006Q1

REPORT INFORMATION
  Report Type: 
  Country: None (occurrence: None)
  Receive Date: 20060213
  Receipt Date: 20051222
  Transmission Date: 20060701
  Serious: Yes (Hospitalization, Other)
  Sender: FDA-Public Use
  Company Number: US-SP-2005-02846

PATIENT
  Age: 58 Year
  Sex: Male

DRUGS (6)
  1. THERACYS [Suspect]
     Indication: BLADDER CANCER
     Route: 043
     Dates: start: 20050101
  2. CARDIZEM [Concomitant]
  3. ASPIRIN [Concomitant]
  4. LOPRESSOR [Concomitant]
  5. ZOCOR [Concomitant]
  6. VITAMINS [Concomitant]

REACTIONS (8)
  - DIFFICULTY IN WALKING [None]
  - HYPERSENSITIVITY [None]
  - HYPERTENSION [None]
  - JOINT SWELLING [None]
  - MALAISE [None]
  - MUSCULOSKELETAL STIFFNESS [None]
  - SERUM SICKNESS [None]
  - TONGUE OEDEMA [None]
